FAERS Safety Report 9166020 (Version 2)
Quarter: 2013Q3

REPORT INFORMATION
  Report Type: Report from Study
  Country: JP (occurrence: JP)
  Receive Date: 20130315
  Receipt Date: 20130723
  Transmission Date: 20140515
  Serious: Yes (Other)
  Sender: FDA-Public Use
  Company Number: JP-VIIV HEALTHCARE LIMITED-B0873554A

PATIENT
  Age: 68 Year
  Sex: Male

DRUGS (13)
  1. LEXIVA [Suspect]
     Indication: ACQUIRED IMMUNODEFICIENCY SYNDROME
     Dosage: 1400MG TWICE PER DAY
     Route: 048
     Dates: start: 20090107, end: 20090611
  2. LEXIVA [Suspect]
     Indication: ACQUIRED IMMUNODEFICIENCY SYNDROME
     Dosage: 700MG TWICE PER DAY
     Route: 048
     Dates: start: 20090612
  3. EPZICOM [Suspect]
     Indication: ACQUIRED IMMUNODEFICIENCY SYNDROME
     Route: 048
     Dates: start: 20090107
  4. PREZISTA NAIVE [Suspect]
     Indication: ACQUIRED IMMUNODEFICIENCY SYNDROME
     Route: 048
     Dates: start: 20101006
  5. NORVIR [Suspect]
     Indication: ACQUIRED IMMUNODEFICIENCY SYNDROME
     Route: 048
     Dates: start: 20090612, end: 20101005
  6. NORVIR [Suspect]
     Indication: ACQUIRED IMMUNODEFICIENCY SYNDROME
     Route: 048
     Dates: start: 20101006, end: 20110831
  7. NORVIR [Concomitant]
     Indication: ACQUIRED IMMUNODEFICIENCY SYNDROME
     Route: 048
     Dates: start: 20110901
  8. ZITHROMAC [Concomitant]
     Indication: OPPORTUNISTIC INFECTION PROPHYLAXIS
     Route: 048
     Dates: start: 20090107, end: 20110511
  9. BAKTAR [Concomitant]
     Indication: ANTIFUNGAL PROPHYLAXIS
     Dosage: 1IUAX PER DAY
     Route: 048
     Dates: start: 20090401, end: 20090707
  10. DIFLUCAN [Concomitant]
     Indication: PROPHYLAXIS
     Dosage: 200MG PER DAY
     Route: 065
     Dates: start: 20090401, end: 20090625
  11. NEUTROGIN [Concomitant]
     Indication: NEUTROPENIA
     Dosage: 100MCG PER DAY
     Route: 058
     Dates: start: 20090401, end: 20090402
  12. BEZATOL SR [Concomitant]
     Indication: HYPERLIPIDAEMIA
     Dosage: 200MG TWICE PER DAY
     Route: 048
     Dates: start: 20100114
  13. CRESTOR [Concomitant]
     Indication: HYPERLIPIDAEMIA
     Dosage: 2.5MG PER DAY
     Route: 048
     Dates: start: 20120405

REACTIONS (3)
  - Diabetes mellitus [Not Recovered/Not Resolved]
  - Pancytopenia [Recovered/Resolved]
  - Rash [Recovering/Resolving]
